FAERS Safety Report 8421504 (Version 4)
Quarter: 2013Q1

REPORT INFORMATION
  Report Type: Report from Study
  Country: FR (occurrence: FR)
  Receive Date: 20120222
  Receipt Date: 20130124
  Transmission Date: 20140127
  Serious: Yes (Hospitalization)
  Sender: FDA-Public Use
  Company Number: PHHO2012FR002944

PATIENT
  Sex: 0

DRUGS (6)
  1. NEORAL [Suspect]
     Indication: RENAL TRANSPLANT
     Dosage: 170 MG, QD
     Route: 002
     Dates: start: 20111125
  2. EVEROLIMUS [Suspect]
     Indication: RENAL TRANSPLANT
     Dosage: 2 MG, UNK
     Route: 002
     Dates: start: 20120218
  3. CELLCEPT [Suspect]
     Indication: RENAL TRANSPLANT
     Dosage: 3 G, QD
     Route: 002
     Dates: start: 20111125, end: 20120217
  4. SOLUPRED [Concomitant]
     Indication: TRANSPLANT REJECTION
     Dosage: 7.5 MG, QD
     Route: 002
     Dates: start: 20111125
  5. PREDNISOLONE [Concomitant]
     Indication: RENAL TRANSPLANT
     Dosage: 7.5 MG, QD
     Dates: start: 20111125
  6. TACROLIMUS [Concomitant]
     Dosage: 4 MG, QD
     Dates: start: 20120218

REACTIONS (2)
  - Angiodysplasia [Not Recovered/Not Resolved]
  - Anaemia [Not Recovered/Not Resolved]
